FAERS Safety Report 9416767 (Version 1)
Quarter: 2013Q3

REPORT INFORMATION
  Report Type: Spontaneous
  Country: US (occurrence: US)
  Receive Date: 20130724
  Receipt Date: 20130724
  Transmission Date: 20140515
  Serious: No
  Sender: FDA-Public Use
  Company Number: US-GALDERMA-US12415949

PATIENT
  Age: 64 Year
  Sex: Male
  Weight: 66 kg

DRUGS (8)
  1. ORACEA (DOXYCYCLINE, USP) CAPSULES 40 MG [Suspect]
     Indication: ROSACEA
     Route: 048
     Dates: start: 20121017, end: 20121223
  2. ORACEA (DOXYCYCLINE, USP) CAPSULES 40 MG [Suspect]
     Indication: OCULAR ROSACEA
     Route: 048
     Dates: start: 20101012, end: 20101012
  3. PROBIOTICS NOS [Suspect]
  4. ASPIRIN [Concomitant]
     Route: 048
  5. EUCERIN CREAM [Concomitant]
     Indication: ROSACEA
     Route: 061
  6. B-12 [Concomitant]
  7. FOLIC AICD [Concomitant]
  8. MILD FACE SOAP [Concomitant]

REACTIONS (12)
  - Scrotal oedema [Not Recovered/Not Resolved]
  - Testicular oedema [Not Recovered/Not Resolved]
  - Eyelid oedema [Not Recovered/Not Resolved]
  - Eye discharge [Not Recovered/Not Resolved]
  - Swelling face [Recovered/Resolved]
  - Lip swelling [Recovered/Resolved]
  - Drug ineffective [Recovered/Resolved]
  - Faeces discoloured [Unknown]
  - Rash macular [Not Recovered/Not Resolved]
  - Paraesthesia [Recovered/Resolved]
  - Hypoaesthesia [Recovered/Resolved]
  - Drug interaction [Recovered/Resolved]
